FAERS Safety Report 4523374-X (Version None)
Quarter: 2004Q4

REPORT INFORMATION
  Report Type: 
  Country: None (occurrence: None)
  Receive Date: 20041209
  Receipt Date: 20041201
  Transmission Date: 20050328
  Serious: Yes (Hospitalization)
  Sender: FDA-Public Use
  Company Number: FABR-10893

PATIENT
  Age: 37 Year
  Sex: Male
  Weight: 71 kg

DRUGS (14)
  1. FABRAZYME [Suspect]
     Indication: FABRY'S DISEASE
     Dosage: 70 MG Q2WKS IV
     Route: 042
     Dates: start: 20030527
  2. CELLCEPT [Concomitant]
  3. PROGRAF [Concomitant]
  4. PREDNISONE [Concomitant]
  5. MAGNESIUM OXIDE [Concomitant]
  6. NEURONTIN [Concomitant]
  7. OSCAL [Concomitant]
  8. SEREVENT [Concomitant]
  9. FOSAMAX [Concomitant]
  10. DIATX [Concomitant]
  11. PEPCID [Concomitant]
  12. SINGULAIR [Concomitant]
  13. ASPIRIN [Concomitant]
  14. BACTRIM DS [Concomitant]

REACTIONS (3)
  - BRONCHIAL OBSTRUCTION [None]
  - BRONCHIECTASIS [None]
  - PNEUMONIA [None]
